FAERS Safety Report 18725557 (Version 2)
Quarter: 2021Q1

REPORT INFORMATION
  Report Type: Report from Study
  Country: US (occurrence: US)
  Receive Date: 20210111
  Receipt Date: 20210209
  Transmission Date: 20210419
  Serious: Yes (Death)
  Sender: FDA-Public Use
  Company Number: US-UCBSA-2020055398

PATIENT
  Age: 76 Year
  Sex: Female

DRUGS (1)
  1. CERTOLIZUMAB PEGOL [Suspect]
     Active Substance: CERTOLIZUMAB PEGOL
     Indication: ANKYLOSING SPONDYLITIS
     Dosage: 400 MILLIGRAM
     Route: 058
     Dates: end: 20201030

REACTIONS (1)
  - Death [Fatal]

NARRATIVE: CASE EVENT DATE: 20201215
